FAERS Safety Report 8814797 (Version 3)
Quarter: 2012Q4

REPORT INFORMATION
  Report Type: 
  Country: US (occurrence: US)
  Receive Date: 20120928
  Receipt Date: 20121204
  Transmission Date: 20130627
  Serious: No
  Sender: FDA-Public Use
  Company Number: US-PFIZER INC-2012238988

PATIENT
  Age: 31 Year
  Sex: Female

DRUGS (2)
  1. LYRICA [Suspect]
     Indication: EDEMA
     Dosage: UNK, 2x/day
     Route: 048
     Dates: start: 20100330, end: 20100416
  2. ROCEPHIN [Suspect]
     Indication: RASH
     Dosage: one injection per day

REACTIONS (3)
  - Drug hypersensitivity [Unknown]
  - Swelling [Recovered/Resolved]
  - Off label use [Unknown]
